FAERS Safety Report 9715335 (Version 4)
Quarter: 2014Q1

REPORT INFORMATION
  Report Type: Spontaneous
  Country: JP (occurrence: JP)
  Receive Date: 20131127
  Receipt Date: 20140103
  Transmission Date: 20141002
  Serious: Yes (Hospitalization)
  Sender: FDA-Public Use
  Company Number: JP-ROCHE-1307068

PATIENT
  Age: 80 Year
  Sex: Female
  Weight: 50 kg

DRUGS (13)
  1. MIRCERA [Suspect]
     Indication: NEPHROGENIC ANAEMIA
     Dosage: DOSAGE IS UNCERTAIN.
     Route: 058
     Dates: start: 20111221
  2. MIRCERA [Suspect]
     Indication: NEPHROGENIC ANAEMIA
     Dosage: DOSAGE IS UNCERTAIN.
     Route: 058
     Dates: start: 20120125, end: 20120222
  3. MIRCERA [Suspect]
     Dosage: DOSAGE IS UNCERTAIN.
     Route: 058
     Dates: start: 20120328, end: 20130508
  4. MIRCERA [Suspect]
     Dosage: DOSAGE IS UNCERTAIN.
     Route: 058
     Dates: start: 20130618
  5. EPOETIN ALFA [Concomitant]
     Dosage: DOSAGE IS UNCERTAIN.
     Route: 042
     Dates: start: 201309, end: 201310
  6. BAYASPIRIN [Concomitant]
     Route: 048
     Dates: end: 20120916
  7. PARIET [Concomitant]
     Indication: GASTRIC ULCER
     Dosage: GERD
     Route: 048
  8. ADALAT CR [Concomitant]
     Indication: HYPERTENSION
     Route: 048
  9. FUROSEMIDE [Concomitant]
     Indication: DIABETIC NEPHROPATHY
     Route: 048
     Dates: start: 20120523
  10. MYSLEE [Concomitant]
     Indication: INSOMNIA
     Route: 048
  11. ZETIA [Concomitant]
     Indication: HYPERCHOLESTEROLAEMIA
     Route: 048
  12. HUMALOG [Concomitant]
     Indication: DIABETIC NEPHROPATHY
     Dosage: DOSAGE IS UNCERTAIN (6.6.0).
     Route: 058
  13. HUMALOG MIX 50/50 [Concomitant]
     Indication: DIABETIC NEPHROPATHY
     Dosage: DOSAGE IS UNCERTAIN (0.0.4).
     Route: 058

REACTIONS (1)
  - Aplasia pure red cell [Not Recovered/Not Resolved]
